FAERS Safety Report 7918294-4 (Version None)
Quarter: 2011Q4

REPORT INFORMATION
  Report Type: 
  Country: None (occurrence: None)
  Receive Date: 20111116
  Receipt Date: 20111110
  Transmission Date: 20120403
  Serious: Yes (Other)
  Sender: FDA-Public Use
  Company Number: ZA-GLAXOSMITHKLINE-B0762920A

PATIENT
  Sex: Female

DRUGS (3)
  1. ZYBAN [Suspect]
  2. TENORETIC 100 [Concomitant]
     Dosage: 50MG PER DAY
     Dates: start: 19860101
  3. ZYBAN [Suspect]
     Indication: EX-TOBACCO USER
     Dates: start: 20060401

REACTIONS (4)
  - RENAL FAILURE [None]
  - PRURITUS GENERALISED [None]
  - HEARING IMPAIRED [None]
  - FISTULA [None]
